FAERS Safety Report 9544106 (Version 4)
Quarter: 2013Q4

REPORT INFORMATION
  Report Type: Report from Study
  Country: US (occurrence: US)
  Receive Date: 20130923
  Receipt Date: 20131202
  Transmission Date: 20140711
  Serious: Yes (Other)
  Sender: FDA-Public Use
  Company Number: US-CELGENEUS-163-C4047-12092129

PATIENT
  Age: 73 Year
  Sex: Male
  Weight: 98.1 kg

DRUGS (47)
  1. CC-4047 [Suspect]
     Indication: PLASMA CELL MYELOMA
     Dosage: 4 MILLIGRAM
     Route: 065
     Dates: start: 20120817, end: 20120906
  2. CC-4047 [Suspect]
     Dosage: 4 MILLIGRAM
     Route: 065
     Dates: start: 20120914, end: 20120916
  3. CC-4047 [Suspect]
     Dosage: 2 MILLIGRAM
     Route: 065
     Dates: start: 20120917, end: 20120919
  4. CC-4047 [Suspect]
     Dosage: 2 MILLIGRAM
     Route: 065
     Dates: start: 20120920, end: 20121004
  5. CC-4047 [Suspect]
     Dosage: 3 MILLIGRAM
     Route: 065
     Dates: start: 20121012, end: 20121101
  6. CC-4047 [Suspect]
     Dosage: 3 MILLIGRAM
     Route: 065
     Dates: start: 20121109, end: 20121129
  7. CC-4047 [Suspect]
     Dosage: 3 MILLIGRAM
     Route: 065
     Dates: start: 20121220, end: 20130109
  8. CC-4047 [Suspect]
     Dosage: 3 MILLIGRAM
     Route: 065
     Dates: start: 20130117, end: 20130206
  9. CC-4047 [Suspect]
     Dosage: 4 MILLIGRAM
     Route: 065
     Dates: start: 20130411, end: 20130501
  10. CC-4047 [Suspect]
     Dosage: 4 MILLIGRAM
     Route: 065
     Dates: start: 20130509, end: 20130529
  11. CC-4047 [Suspect]
     Dosage: 3 MILLIGRAM
     Route: 065
     Dates: start: 2013, end: 2013
  12. BACTRIM [Concomitant]
     Indication: PRODUCT USED FOR UNKNOWN INDICATION
     Dosage: 800-160MG
     Route: 048
     Dates: start: 20110921, end: 20120912
  13. METFORMIN HCL [Concomitant]
     Indication: PRODUCT USED FOR UNKNOWN INDICATION
     Route: 048
  14. GLIMEPIRIDE [Concomitant]
     Indication: PRODUCT USED FOR UNKNOWN INDICATION
     Route: 048
  15. JANUVIA [Concomitant]
     Indication: PRODUCT USED FOR UNKNOWN INDICATION
     Route: 048
     Dates: start: 20100526, end: 20120912
  16. ACTOS [Concomitant]
     Indication: PRODUCT USED FOR UNKNOWN INDICATION
     Dosage: 15 MILLIGRAM
     Route: 048
     Dates: start: 20100624, end: 20120912
  17. QUINAPRIL HCL [Concomitant]
     Indication: PRODUCT USED FOR UNKNOWN INDICATION
     Dosage: 5 MILLIGRAM
     Route: 048
  18. FLOMAX [Concomitant]
     Indication: PRODUCT USED FOR UNKNOWN INDICATION
     Dosage: .4 MILLIGRAM
     Route: 048
  19. HUMULIN R [Concomitant]
     Indication: PRODUCT USED FOR UNKNOWN INDICATION
     Route: 048
  20. HUMULIN R [Concomitant]
     Dosage: 100 UNITS
     Route: 041
  21. OMEPRAZOLE [Concomitant]
     Indication: PRODUCT USED FOR UNKNOWN INDICATION
     Dosage: 40 MILLIGRAM
     Route: 048
  22. B-12 [Concomitant]
     Indication: PRODUCT USED FOR UNKNOWN INDICATION
     Dosage: 5000 MICROGRAM
     Route: 048
  23. VITAMIN D [Concomitant]
     Indication: PRODUCT USED FOR UNKNOWN INDICATION
     Dosage: 6000 IU (INTERNATIONAL UNIT)
     Route: 048
  24. AMITRIPTYLINE HCL [Concomitant]
     Indication: PRODUCT USED FOR UNKNOWN INDICATION
     Dosage: 25 MILLIGRAM
     Route: 048
     Dates: start: 20110921, end: 20120912
  25. AMITRIPTYLINE HCL [Concomitant]
     Dosage: 25 MILLIGRAM
     Route: 048
     Dates: start: 20120918
  26. OXYCODONE HCL [Concomitant]
     Indication: PAIN
     Dosage: 15MG-30MG 1/2-1 TABLET
     Route: 048
     Dates: start: 20120912
  27. OXYCODONE HCL [Concomitant]
     Dosage: 30MG 1/2-1 TABLET
     Route: 048
     Dates: start: 20120914
  28. OXYCODONE HCL [Concomitant]
     Dosage: 30MG 1/2-1 TABLET
     Route: 048
     Dates: start: 20120920
  29. OXYCODONE HCL [Concomitant]
     Dosage: 30MG 1/2-1 TABLET
     Route: 048
     Dates: start: 20120926
  30. DIAZEPAM [Concomitant]
     Indication: SLEEP DISORDER
     Dosage: 10MG /1-2 TABLETS
     Route: 048
     Dates: start: 20120815
  31. DIAZEPAM [Concomitant]
     Dosage: 10MG /1-2 TABLETS
     Route: 048
     Dates: start: 20120912
  32. DIAZEPAM [Concomitant]
     Dosage: 10MG /1-2 TABLETS
     Route: 048
     Dates: start: 20120914
  33. DIAZEPAM [Concomitant]
     Dosage: 10MG /1-2 TABLETS
     Route: 048
     Dates: start: 20120918
  34. STOOL SOFTENER [Concomitant]
     Indication: PRODUCT USED FOR UNKNOWN INDICATION
     Route: 048
  35. ZOMETA [Concomitant]
     Indication: PRODUCT USED FOR UNKNOWN INDICATION
     Dosage: 2 MILLIGRAM
     Route: 041
     Dates: start: 20120815
  36. INVANZ [Concomitant]
     Indication: PRODUCT USED FOR UNKNOWN INDICATION
     Dosage: 1000 MILLIGRAM
     Route: 041
     Dates: start: 20120912, end: 20120920
  37. NEUPOGEN [Concomitant]
     Indication: PRODUCT USED FOR UNKNOWN INDICATION
     Dosage: 300 MICROGRAM
     Route: 065
  38. CARDURA [Concomitant]
     Indication: PRODUCT USED FOR UNKNOWN INDICATION
     Dosage: 1 MILLIGRAM
     Route: 048
     Dates: start: 20120916
  39. ATIVAN [Concomitant]
     Indication: INSOMNIA
     Dosage: .5 MILLIGRAM
     Route: 048
     Dates: start: 20120916
  40. ATIVAN [Concomitant]
     Dosage: .5 MILLIGRAM
     Route: 048
     Dates: start: 20120918
  41. ATIVAN [Concomitant]
     Dosage: .5 MILLIGRAM
     Route: 048
     Dates: start: 20120920
  42. ATIVAN [Concomitant]
     Dosage: .5 MILLIGRAM
     Route: 048
     Dates: start: 20120926
  43. DEXAMETHASONE [Concomitant]
     Indication: PLASMA CELL MYELOMA
     Route: 065
  44. LACTULOSE [Concomitant]
     Indication: PRODUCT USED FOR UNKNOWN INDICATION
     Route: 065
  45. INSULIN LANTUS [Concomitant]
     Indication: PRODUCT USED FOR UNKNOWN INDICATION
     Dosage: 10 UNITS
     Route: 058
  46. LEVAQUIN [Concomitant]
     Indication: PRODUCT USED FOR UNKNOWN INDICATION
     Dosage: 500 MICROGRAM
     Route: 065
  47. POTASSIUM PHOSPHATE [Concomitant]
     Indication: PRODUCT USED FOR UNKNOWN INDICATION
     Route: 065

REACTIONS (2)
  - Liver injury [Recovered/Resolved]
  - Drug dispensing error [Unknown]
